FAERS Safety Report 18397934 (Version 8)
Quarter: 2025Q1

REPORT INFORMATION
  Report Type: Report from Study
  Country: US (occurrence: US)
  Receive Date: 20201019
  Receipt Date: 20250331
  Transmission Date: 20250409
  Serious: Yes (Other)
  Sender: TAKEDA
  Company Number: US-SHIRE-US202034319

PATIENT
  Sex: Female
  Weight: 54 kg

DRUGS (36)
  1. HUMAN IMMUNOGLOBULIN G [Suspect]
     Active Substance: HUMAN IMMUNOGLOBULIN G
     Indication: Immunodeficiency common variable
     Dosage: 33.5 GRAM, Q4WEEKS
     Dates: start: 20171216
  2. HUMAN IMMUNOGLOBULIN G [Suspect]
     Active Substance: HUMAN IMMUNOGLOBULIN G
     Dosage: 25 GRAM, Q4WEEKS
  3. DIPHENHYDRAMINE HYDROCHLORIDE [Concomitant]
     Active Substance: DIPHENHYDRAMINE HYDROCHLORIDE
  4. SODIUM CHLORIDE [Concomitant]
     Active Substance: SODIUM CHLORIDE
  5. SUMATRIPTAN [Concomitant]
     Active Substance: SUMATRIPTAN
     Indication: Product used for unknown indication
  6. EPINEPHRINE [Concomitant]
     Active Substance: EPINEPHRINE
     Indication: Product used for unknown indication
  7. ALPRAZOLAM [Concomitant]
     Active Substance: ALPRAZOLAM
     Indication: Product used for unknown indication
  8. PROPRANOLOL HYDROCHLORIDE [Concomitant]
     Active Substance: PROPRANOLOL HYDROCHLORIDE
     Indication: Product used for unknown indication
  9. ACETAMINOPHEN [Concomitant]
     Active Substance: ACETAMINOPHEN
     Indication: Product used for unknown indication
  10. SODIUM CHLORIDE [Concomitant]
     Active Substance: SODIUM CHLORIDE
     Indication: Product used for unknown indication
  11. ADDERALL [Concomitant]
     Active Substance: AMPHETAMINE ASPARTATE\AMPHETAMINE SULFATE\DEXTROAMPHETAMINE SACCHARATE\DEXTROAMPHETAMINE SULFATE
     Indication: Product used for unknown indication
  12. VYVANSE [Concomitant]
     Active Substance: LISDEXAMFETAMINE DIMESYLATE
     Indication: Product used for unknown indication
  13. DIPHENHYDRAMINE [Concomitant]
     Active Substance: DIPHENHYDRAMINE
     Indication: Product used for unknown indication
  14. LIDOCAINE [Concomitant]
     Active Substance: LIDOCAINE
     Indication: Product used for unknown indication
  15. PYRIDOSTIGMINE BROMIDE [Concomitant]
     Active Substance: PYRIDOSTIGMINE BROMIDE
     Indication: Product used for unknown indication
  16. NEOMYCIN AND POLYMYXIN B SULFATES AND HYDROCORTISONE [Concomitant]
     Active Substance: HYDROCORTISONE\NEOMYCIN SULFATE\POLYMYXIN B SULFATE
     Indication: Product used for unknown indication
  17. FLUDROCORTISONE ACETATE [Concomitant]
     Active Substance: FLUDROCORTISONE ACETATE
     Indication: Product used for unknown indication
  18. NAMENDA [Concomitant]
     Active Substance: MEMANTINE HYDROCHLORIDE
     Indication: Product used for unknown indication
  19. CLONAZEPAM [Concomitant]
     Active Substance: CLONAZEPAM
     Indication: Product used for unknown indication
  20. CYCLOBENZAPRINE [Concomitant]
     Active Substance: CYCLOBENZAPRINE
     Indication: Product used for unknown indication
  21. ACETAMINOPHEN\HYDROCODONE [Concomitant]
     Active Substance: ACETAMINOPHEN\HYDROCODONE
     Indication: Product used for unknown indication
  22. IBUPROFEN [Concomitant]
     Active Substance: IBUPROFEN
  23. AMBIEN [Concomitant]
     Active Substance: ZOLPIDEM TARTRATE
  24. PFIZER-BIONTECH COVID-19 VACCINE [Concomitant]
     Active Substance: TOZINAMERAN
  25. MELOXICAM [Concomitant]
     Active Substance: MELOXICAM
  26. Lozenger t [Concomitant]
  27. ZINC [Concomitant]
     Active Substance: ZINC
  28. PYRIDOSTIGMINE BROMIDE [Concomitant]
     Active Substance: PYRIDOSTIGMINE BROMIDE
  29. VITAMIN C [Concomitant]
     Active Substance: ASCORBIC ACID
  30. GLUTATHIONE [Concomitant]
     Active Substance: GLUTATHIONE
  31. OTEZLA [Concomitant]
     Active Substance: APREMILAST
  32. COENZYME Q10 [Concomitant]
     Active Substance: DIETARY SUPPLEMENT\UBIDECARENONE
  33. CLINDAMYCIN HYDROCHLORIDE [Concomitant]
     Active Substance: CLINDAMYCIN HYDROCHLORIDE
  34. MINOCYCLINE HYDROCHLORIDE [Concomitant]
     Active Substance: MINOCYCLINE HYDROCHLORIDE
  35. CYANOCOBALAMIN [Concomitant]
     Active Substance: CYANOCOBALAMIN
  36. GABAPENTIN [Concomitant]
     Active Substance: GABAPENTIN

REACTIONS (17)
  - Autoimmune disorder [Unknown]
  - Meningitis aseptic [Unknown]
  - Fall [Unknown]
  - Illness [Unknown]
  - Ear infection [Unknown]
  - Respiratory tract infection [Unknown]
  - Skin laceration [Unknown]
  - Chronic sinusitis [Unknown]
  - Inability to afford medication [Unknown]
  - Renal disorder [Unknown]
  - Product dose omission issue [Unknown]
  - Sinusitis [Unknown]
  - Musculoskeletal stiffness [Unknown]
  - Influenza [Not Recovered/Not Resolved]
  - Pain [Unknown]
  - Headache [Unknown]
  - COVID-19 [Unknown]
